FAERS Safety Report 14315524 (Version 10)
Quarter: 2018Q3

REPORT INFORMATION
  Report Type: Report from Study
  Country: CA (occurrence: CA)
  Receive Date: 20171221
  Receipt Date: 20180921
  Transmission Date: 20181010
  Serious: Yes (Other)
  Sender: FDA-Public Use
  Company Number: CA-SA-2017SA250977

PATIENT
  Age: 32 Year
  Sex: Male

DRUGS (10)
  1. ALEMTUZUMAB [Suspect]
     Active Substance: ALEMTUZUMAB
     Dosage: 12 MG,QD
     Route: 041
     Dates: start: 20171204, end: 20171208
  2. METHYLPREDNISOLONE. [Concomitant]
     Active Substance: METHYLPREDNISOLONE
     Indication: PREMEDICATION
     Dosage: 1 G
     Route: 042
     Dates: start: 20171204, end: 20171206
  3. SOLU?MEDROL [Concomitant]
     Active Substance: METHYLPREDNISOLONE SODIUM SUCCINATE
     Dosage: UNK
     Route: 042
     Dates: start: 20180823, end: 20180825
  4. SOLU?MEDROL [Suspect]
     Active Substance: METHYLPREDNISOLONE SODIUM SUCCINATE
     Indication: MULTIPLE SCLEROSIS RELAPSE
     Dosage: UNK UNK, UNK
     Route: 042
     Dates: start: 20180823, end: 20180825
  5. ACETAMINOPHEN. [Concomitant]
     Active Substance: ACETAMINOPHEN
     Indication: PREMEDICATION
     Dosage: 650 MG
     Route: 048
     Dates: start: 20171204
  6. ERGOCALCIFEROL. [Concomitant]
     Active Substance: ERGOCALCIFEROL
     Dosage: 30000 IU,QW
     Route: 065
  7. BENADRYL [Concomitant]
     Active Substance: DIPHENHYDRAMINE HYDROCHLORIDE
     Indication: PREMEDICATION
     Dosage: 50 MG
     Route: 048
     Dates: start: 20171204
  8. ACICLOVIR [Concomitant]
     Active Substance: ACYCLOVIR
     Indication: PREMEDICATION
     Dosage: 200 MG,BID
     Route: 048
     Dates: start: 20171204
  9. GRAVOL [Concomitant]
     Active Substance: DIMENHYDRINATE
     Indication: PREMEDICATION
     Dosage: 50 MG
     Route: 048
     Dates: start: 20171204
  10. FISH OIL [Concomitant]
     Active Substance: FISH OIL
     Dosage: 1000 IU,QD
     Route: 065

REACTIONS (37)
  - Haematochezia [Not Recovered/Not Resolved]
  - Hypoaesthesia [Recovering/Resolving]
  - Laboratory test abnormal [Recovered/Resolved]
  - Urine analysis abnormal [Not Recovered/Not Resolved]
  - Pyrexia [Recovered/Resolved]
  - Erythema [Recovered/Resolved]
  - Photosensitivity reaction [Recovering/Resolving]
  - Infusion site pain [Recovered/Resolved]
  - Muscle fatigue [Not Recovered/Not Resolved]
  - Hot flush [Recovered/Resolved]
  - Lipaemic index score [Unknown]
  - Granulocyte percentage [Recovered/Resolved]
  - Red cell distribution width increased [Recovered/Resolved]
  - Neutrophil percentage increased [Recovered/Resolved]
  - White blood cells urine positive [Unknown]
  - Bacterial test [Unknown]
  - Protein urine present [Unknown]
  - Nausea [Recovered/Resolved]
  - Mean cell haemoglobin concentration decreased [Recovered/Resolved]
  - Red blood cells urine [Not Recovered/Not Resolved]
  - Semenuria [Unknown]
  - Abdominal pain [Not Recovered/Not Resolved]
  - Palpitations [Recovered/Resolved]
  - Neutrophil percentage decreased [Recovered/Resolved]
  - Urticaria [Recovered/Resolved]
  - Lymphocyte count decreased [Not Recovered/Not Resolved]
  - Fatigue [Recovering/Resolving]
  - Multiple sclerosis relapse [Not Recovered/Not Resolved]
  - Muscular weakness [Not Recovered/Not Resolved]
  - Lymphocyte percentage decreased [Recovered/Resolved]
  - Chills [Recovered/Resolved]
  - White blood cell count decreased [Recovered/Resolved]
  - Heart rate increased [Recovering/Resolving]
  - Crystal urine present [Unknown]
  - Urine analysis abnormal [Not Recovered/Not Resolved]
  - Urobilinogen urine increased [Not Recovered/Not Resolved]
  - Blood pressure fluctuation [Unknown]

NARRATIVE: CASE EVENT DATE: 20171204
